FAERS Safety Report 5240539-2 (Version None)
Quarter: 2007Q1

REPORT INFORMATION
  Report Type: 
  Country: None (occurrence: None)
  Receive Date: 20070219
  Receipt Date: 20070205
  Transmission Date: 20070707
  Serious: Yes (Death, Hospitalization)
  Sender: FDA-Public Use
  Company Number: JP-ROCHE-481427

PATIENT
  Age: 10 Year
  Sex: Male

DRUGS (3)
  1. ALL-TRANS-RETINOIC ACID [Suspect]
     Route: 048
  2. CYTARABINE [Concomitant]
     Route: 042
  3. DAUNORUBICIN HCL [Concomitant]

REACTIONS (2)
  - NERVOUS SYSTEM DISORDER [None]
  - RETINOIC ACID SYNDROME [None]
